FAERS Safety Report 11442351 (Version 1)
Quarter: 2015Q3

REPORT INFORMATION
  Report Type: Spontaneous
  Country: US (occurrence: None)
  Receive Date: 20150901
  Receipt Date: 20150901
  Transmission Date: 20151125
  Serious: Yes (Hospitalization, Other)
  Sender: FDA-Public Use
  Company Number: ADR-2015-00394

PATIENT
  Age: 25 Year
  Sex: Male

DRUGS (2)
  1. LIORESAL [Suspect]
     Active Substance: BACLOFEN
     Indication: MUSCLE SPASTICITY
     Dosage: 1150MCG/DAY
  2. ASPIRIN. [Suspect]
     Active Substance: ASPIRIN

REACTIONS (7)
  - Medical device site extravasation [None]
  - Post procedural infection [None]
  - Therapeutic response decreased [None]
  - Cerebrospinal fluid leakage [None]
  - Muscle spasms [None]
  - Medical device site discharge [None]
  - Muscle spasticity [None]
